FAERS Safety Report 11975897 (Version 1)
Quarter: 2016Q1

REPORT INFORMATION
  Report Type: Spontaneous
  Country: CA (occurrence: CA)
  Receive Date: 20160129
  Receipt Date: 20160129
  Transmission Date: 20160526
  Serious: Yes (Death, Hospitalization, Other)
  Sender: FDA-Public Use
  Company Number: CA-ROCHE-1609662

PATIENT
  Age: 39 Year
  Sex: Female

DRUGS (10)
  1. ZANAMIVIR [Suspect]
     Active Substance: ZANAMIVIR
     Indication: INFLUENZA
     Route: 065
  2. ZANAMIVIR [Suspect]
     Active Substance: ZANAMIVIR
     Route: 042
     Dates: start: 20130110
  3. OSELTAMIVIR [Suspect]
     Active Substance: OSELTAMIVIR
     Indication: INFLUENZA
     Route: 048
  4. OSELTAMIVIR [Suspect]
     Active Substance: OSELTAMIVIR
     Route: 048
     Dates: start: 20130124
  5. MYCOPHENOLATE MOFETIL. [Suspect]
     Active Substance: MYCOPHENOLATE MOFETIL
     Indication: PROPHYLAXIS AGAINST TRANSPLANT REJECTION
     Route: 065
  6. ZANAMIVIR [Suspect]
     Active Substance: ZANAMIVIR
     Route: 065
  7. OSELTAMIVIR [Suspect]
     Active Substance: OSELTAMIVIR
     Route: 048
  8. CYCLOSPORINE. [Suspect]
     Active Substance: CYCLOSPORINE
     Indication: PROPHYLAXIS AGAINST TRANSPLANT REJECTION
     Route: 065
  9. METHYLPREDNISOLONE. [Suspect]
     Active Substance: METHYLPREDNISOLONE
     Indication: PROPHYLAXIS AGAINST TRANSPLANT REJECTION
     Route: 042
  10. ALEMTUZUMAB [Concomitant]
     Active Substance: ALEMTUZUMAB

REACTIONS (10)
  - Dyspnoea [Unknown]
  - Influenza [Fatal]
  - Pseudomonas infection [Fatal]
  - Respiratory disorder [Unknown]
  - Productive cough [Unknown]
  - Legionella infection [Fatal]
  - Viral mutation identified [Unknown]
  - Cytomegalovirus infection [Fatal]
  - Graft versus host disease [Fatal]
  - Pathogen resistance [Unknown]
